FAERS Safety Report 24265164 (Version 2)
Quarter: 2024Q3

REPORT INFORMATION
  Report Type: Spontaneous
  Country: US (occurrence: US)
  Receive Date: 20240829
  Receipt Date: 20240904
  Transmission Date: 20241016
  Serious: Yes (Disabling, Other)
  Sender: SANDOZ
  Company Number: US-SANDOZ-SDZ2024US074603

PATIENT
  Age: 66 Year
  Sex: Female
  Weight: 68.18 kg

DRUGS (1)
  1. RECLAST [Suspect]
     Active Substance: ZOLEDRONIC ACID
     Indication: Product used for unknown indication
     Dosage: 1 DF ONE SINGLE DOSE
     Route: 065
     Dates: start: 20240807

REACTIONS (12)
  - Feeding disorder [Not Recovered/Not Resolved]
  - Taste disorder [Recovering/Resolving]
  - Peripheral swelling [Recovered/Resolved]
  - Musculoskeletal chest pain [Not Recovered/Not Resolved]
  - Muscle spasms [Not Recovered/Not Resolved]
  - Musculoskeletal stiffness [Not Recovered/Not Resolved]
  - Pain in extremity [Not Recovered/Not Resolved]
  - Hyperhidrosis [Not Recovered/Not Resolved]
  - Chills [Not Recovered/Not Resolved]
  - Vomiting [Not Recovered/Not Resolved]
  - Neck pain [Not Recovered/Not Resolved]
  - Nausea [Unknown]

NARRATIVE: CASE EVENT DATE: 20240809
